FAERS Safety Report 4507518-1 (Version None)
Quarter: 2004Q4

REPORT INFORMATION
  Report Type: 
  Country: None (occurrence: None)
  Receive Date: 20041118
  Receipt Date: 20041027
  Transmission Date: 20050328
  Serious: Yes (Other)
  Sender: FDA-Public Use
  Company Number: 2004034519

PATIENT
  Age: 69 Year
  Sex: Female

DRUGS (4)
  1. LIPITOR [Suspect]
     Indication: HYPERCHOLESTEROLAEMIA
     Dosage: 10 MG (10 MG 1 IN 1 D ORAL)
     Route: 048
     Dates: start: 20000901
  2. TRIAZOLAM [Suspect]
     Indication: INSOMNIA
     Dosage: 0.25 MG PRN ORAL
     Route: 048
  3. DILTIAZEM [Suspect]
     Indication: HYPERTENSION
     Dosage: 100 MG (1 IN 1 D ORAL)
     Route: 048
  4. LISINOPRIL [Suspect]
     Indication: HYPERTENSION
     Dosage: 10 MG (1 IN 1 D ORAL)
     Route: 048

REACTIONS (9)
  - CANDIDIASIS [None]
  - GLOSSITIS [None]
  - GLOSSODYNIA [None]
  - HEPATITIS [None]
  - OPEN WOUND [None]
  - PARAESTHESIA ORAL [None]
  - TONGUE COATED [None]
  - TONGUE ERUPTION [None]
  - TONGUE INJURY [None]
